FAERS Safety Report 24685635 (Version 2)
Quarter: 2024Q4

REPORT INFORMATION
  Report Type: Spontaneous
  Country: CA (occurrence: CA)
  Receive Date: 20241202
  Receipt Date: 20241212
  Transmission Date: 20250115
  Serious: Yes (Death, Hospitalization)
  Sender: ROCHE
  Company Number: CA-ROCHE-10000144989

PATIENT
  Age: 71 Year
  Sex: Female

DRUGS (2)
  1. RITUXIMAB [Suspect]
     Active Substance: RITUXIMAB
     Indication: Rheumatoid arthritis
     Route: 042
  2. RITUXIMAB [Suspect]
     Active Substance: RITUXIMAB
     Route: 042

REACTIONS (7)
  - Back pain [Fatal]
  - Joint injury [Fatal]
  - Metastases to liver [Fatal]
  - Metastases to lung [Fatal]
  - Pain [Fatal]
  - Pneumonia [Fatal]
  - Death [Fatal]
